FAERS Safety Report 10006244 (Version 1)
Quarter: 2014Q1

REPORT INFORMATION
  Report Type: Spontaneous
  Country: CN (occurrence: CN)
  Receive Date: 20140313
  Receipt Date: 20140313
  Transmission Date: 20141002
  Serious: Yes (Other)
  Sender: FDA-Public Use
  Company Number: CN-ROCHE-1359340

PATIENT
  Age: 52 Year
  Sex: Female

DRUGS (1)
  1. HERCEPTIN [Suspect]
     Indication: HER-2 POSITIVE BREAST CANCER
     Dosage: 10 DOSE FORM(ABOUT 11 TREATMENT CYCLES, 4400MG)
     Route: 041
     Dates: start: 201307

REACTIONS (1)
  - Ventricular extrasystoles [Unknown]
